FAERS Safety Report 5787281-7 (Version None)
Quarter: 2008Q2

REPORT INFORMATION
  Report Type: 
  Country: None (occurrence: None)
  Receive Date: 20080625
  Receipt Date: 20070904
  Transmission Date: 20081010
  Serious: No
  Sender: FDA-Public Use
  Company Number: US-ASTRAZENECA-2007UW20810

PATIENT
  Age: 10 Year
  Sex: Female
  Weight: 27.2 kg

DRUGS (2)
  1. PULMICORT RESPULES [Suspect]
     Indication: ASTHMA
     Route: 055
     Dates: start: 20070902
  2. ALBUTEROL [Concomitant]

REACTIONS (2)
  - COUGH [None]
  - DYSPNOEA [None]
